FAERS Safety Report 5291056-5 (Version None)
Quarter: 2007Q2

REPORT INFORMATION
  Report Type: 
  Country: None (occurrence: None)
  Receive Date: 20070409
  Receipt Date: 20070404
  Transmission Date: 20071010
  Serious: Yes (Disabling, Other)
  Sender: FDA-Public Use
  Company Number: 2007UW01402

PATIENT
  Age: 848 Month
  Sex: Female
  Weight: 63.6 kg

DRUGS (3)
  1. TOPROL-XL [Suspect]
     Route: 048
     Dates: start: 20030101
  2. HYDROCHLOROTHIAZIDE [Concomitant]
  3. LIPITOR [Concomitant]

REACTIONS (4)
  - ARTERIAL STENOSIS [None]
  - PERIPHERAL ARTERIAL OCCLUSIVE DISEASE [None]
  - SUBCLAVIAN ARTERY STENOSIS [None]
  - TEMPORAL ARTERITIS [None]
